FAERS Safety Report 6769111-X (Version None)
Quarter: 2010Q2

REPORT INFORMATION
  Report Type: 
  Country: None (occurrence: None)
  Receive Date: 20100615
  Receipt Date: 20100531
  Transmission Date: 20101027
  Serious: Yes (Other)
  Sender: FDA-Public Use
  Company Number: ES-JNJFOC-20100603893

PATIENT
  Age: 87 Year
  Sex: Female

DRUGS (6)
  1. ZALDIAR [Suspect]
     Indication: GANGRENE
     Route: 048
  2. NOCTAMID [Interacting]
     Indication: DRUG USE FOR UNKNOWN INDICATION
     Route: 048
  3. OMEPRAZOLE [Concomitant]
  4. SINTROM [Concomitant]
  5. FORTZAAR [Concomitant]
  6. INSULIN [Concomitant]

REACTIONS (4)
  - DRUG INTERACTION [None]
  - PNEUMONIA [None]
  - PYREXIA [None]
  - SOMNOLENCE [None]
